FAERS Safety Report 5212514-5 (Version None)
Quarter: 2007Q1

REPORT INFORMATION
  Report Type: 
  Country: None (occurrence: None)
  Receive Date: 20070118
  Receipt Date: 20070108
  Transmission Date: 20070707
  Serious: Yes (Other)
  Sender: FDA-Public Use
  Company Number: US-PFIZER INC-2006130834

PATIENT
  Age: 58 Year
  Sex: Male

DRUGS (2)
  1. CHANTIX [Suspect]
  2. MEDROL [Concomitant]

REACTIONS (5)
  - ESCHERICHIA INFECTION [None]
  - FOOD POISONING [None]
  - INFLUENZA [None]
  - TREMOR [None]
  - VOMITING [None]
